FAERS Safety Report 9337682 (Version 1)
Quarter: 2013Q2

REPORT INFORMATION
  Report Type: Spontaneous
  Country: JP (occurrence: JP)
  Receive Date: 20130607
  Receipt Date: 20130607
  Transmission Date: 20140414
  Serious: Yes (Hospitalization, Other)
  Sender: FDA-Public Use
  Company Number: JP-JHP PHARMACEUTICALS, LLC-JHP201300336

PATIENT
  Age: 57 Year
  Sex: Male

DRUGS (1)
  1. DANTRIUM [Suspect]
     Dosage: 20 MG, BID
     Route: 041
     Dates: start: 20130509, end: 20130510

REACTIONS (1)
  - Blood potassium increased [Unknown]
